FAERS Safety Report 5088412-7 (Version None)
Quarter: 2006Q3

REPORT INFORMATION
  Report Type: 
  Country: None (occurrence: None)
  Receive Date: 20060821
  Receipt Date: 20060804
  Transmission Date: 20061208
  Serious: Yes (Hospitalization)
  Sender: FDA-Public Use
  Company Number: 2006CT000663

PATIENT
  Age: 36 Year
  Sex: Female
  Weight: 151.5014 kg

DRUGS (14)
  1. VENTAVIS [Suspect]
     Indication: PULMONARY HYPERTENSION
     Dosage: 5 UG;6TO9X/DAY;INH
     Route: 055
     Dates: start: 20060602
  2. LOVENOX [Concomitant]
  3. PHENYTOIN [Concomitant]
  4. FOLIC ACID [Concomitant]
  5. PREVACID [Concomitant]
  6. GLIPIZIDE [Concomitant]
  7. FENTANYL [Concomitant]
  8. TRAMADOL HCL [Concomitant]
  9. WARFARIN [Concomitant]
  10. TRACLEER [Concomitant]
  11. SIMVASTATIN [Concomitant]
  12. AVANDIA [Concomitant]
  13. WELLBUTRIN [Concomitant]
  14. TOPROL-XL [Concomitant]

REACTIONS (11)
  - ANTICONVULSANT DRUG LEVEL DECREASED [None]
  - CHEST PAIN [None]
  - DIZZINESS [None]
  - DYSPNOEA [None]
  - GRAND MAL CONVULSION [None]
  - HEADACHE [None]
  - HYPOXIA [None]
  - PACEMAKER COMPLICATION [None]
  - PHARYNGOLARYNGEAL PAIN [None]
  - PULMONARY EMBOLISM [None]
  - THROMBOSIS IN DEVICE [None]
